FAERS Safety Report 18414296 (Version 1)
Quarter: 2020Q4

REPORT INFORMATION
  Report Type: Spontaneous
  Country: US (occurrence: US)
  Receive Date: 20201022
  Receipt Date: 20201022
  Transmission Date: 20210114
  Serious: Yes (Death)
  Sender: FDA-Public Use
  Company Number: US-BTGSP-US-BTGSP-20-0156

PATIENT
  Age: 77 Year
  Sex: Female

DRUGS (2)
  1. DIGIFAB [Suspect]
     Active Substance: OVINE DIGOXIN IMMUNE FAB
     Indication: TOXICITY TO VARIOUS AGENTS
     Dosage: 40 MILLIGRAM
     Route: 065
  2. DIGIFAB [Suspect]
     Active Substance: OVINE DIGOXIN IMMUNE FAB
     Dosage: 80 MILLIGRAM
     Route: 065

REACTIONS (2)
  - Blood pressure decreased [Unknown]
  - Circulatory collapse [Fatal]
